FAERS Safety Report 7563089-7 (Version None)
Quarter: 2011Q2

REPORT INFORMATION
  Report Type: 
  Country: None (occurrence: None)
  Receive Date: 20110615
  Receipt Date: 20110615
  Transmission Date: 20111010
  Serious: Yes (Hospitalization)
  Sender: FDA-Public Use
  Company Number: UTC-007656

PATIENT
  Age: 71 Year
  Sex: Female

DRUGS (5)
  1. TYVASO [Suspect]
     Indication: SYSTEMIC SCLEROSIS
     Dosage: 18 TO 54 MCG (4 IN 1 D),INHALATION
     Route: 055
     Dates: start: 20101215
  2. TYVASO [Suspect]
     Indication: PULMONARY ARTERIAL HYPERTENSION
     Dosage: 18 TO 54 MCG (4 IN 1 D),INHALATION
     Route: 055
     Dates: start: 20101215
  3. DIURETICS [Concomitant]
  4. TRACLEER (BOSENTAN) DIURETICS(DIURETICS) [Concomitant]
  5. REVATIO [Concomitant]

REACTIONS (2)
  - POST PROCEDURAL COMPLICATION [None]
  - DYSPNOEA [None]
